FAERS Safety Report 5415777-6 (Version None)
Quarter: 2007Q3

REPORT INFORMATION
  Report Type: 
  Country: None (occurrence: None)
  Receive Date: 20070815
  Receipt Date: 20070808
  Transmission Date: 20080115
  Serious: Yes (Other)
  Sender: FDA-Public Use
  Company Number: US-PFIZER INC-2007043130

PATIENT
  Sex: Female

DRUGS (1)
  1. CELEBREX [Suspect]
     Indication: BACK PAIN

REACTIONS (7)
  - AMNESIA [None]
  - ANXIETY [None]
  - CARDIOVASCULAR DISORDER [None]
  - CHEST PAIN [None]
  - DYSPNOEA [None]
  - HYPOAESTHESIA [None]
  - PARAESTHESIA [None]
